FAERS Safety Report 4937230-6 (Version None)
Quarter: 2006Q1

REPORT INFORMATION
  Report Type: 
  Country: None (occurrence: None)
  Receive Date: 20060307
  Receipt Date: 20060307
  Transmission Date: 20060701
  Serious: Yes (Hospitalization)
  Sender: FDA-Public Use
  Company Number: None

PATIENT
  Age: 70 Year
  Sex: Male
  Weight: 86.6 kg

DRUGS (2)
  1. GATIFLOXACIN [Suspect]
     Indication: RESPIRATORY TRACT INFECTION
     Dosage: 400 MG PO
     Route: 048
  2. DILTIAZEM [Suspect]
     Indication: CORONARY ARTERY DISEASE
     Dosage: 360 MG SA SA PO [SEVERAL YEARS]
     Route: 048

REACTIONS (3)
  - BRADYCARDIA [None]
  - DIABETES MELLITUS INADEQUATE CONTROL [None]
  - HYPERGLYCAEMIA [None]
